FAERS Safety Report 20977597 (Version 8)
Quarter: 2022Q3

REPORT INFORMATION
  Report Type: Report from Study
  Country: CA (occurrence: CA)
  Receive Date: 20220618
  Receipt Date: 20220910
  Transmission Date: 20221027
  Serious: Yes (Other)
  Sender: FDA-Public Use
  Company Number: CA-ABBVIE-22K-028-4433809-00

PATIENT
  Sex: Female

DRUGS (5)
  1. RINVOQ [Suspect]
     Active Substance: UPADACITINIB
     Indication: Psoriatic arthropathy
     Route: 048
     Dates: start: 20220408, end: 2022
  2. RINVOQ [Suspect]
     Active Substance: UPADACITINIB
     Indication: Ankylosing spondylitis
     Route: 048
     Dates: start: 20220622, end: 2022
  3. RINVOQ [Suspect]
     Active Substance: UPADACITINIB
     Route: 048
     Dates: start: 20220722, end: 2022
  4. RINVOQ [Suspect]
     Active Substance: UPADACITINIB
     Route: 048
     Dates: start: 2022, end: 20220814
  5. VALTREX [Concomitant]
     Active Substance: VALACYCLOVIR HYDROCHLORIDE
     Indication: Product used for unknown indication
     Dates: start: 20220812

REACTIONS (24)
  - Cataract [Unknown]
  - Ulcer [Not Recovered/Not Resolved]
  - Tongue ulceration [Not Recovered/Not Resolved]
  - Tongue disorder [Unknown]
  - Tongue erythema [Unknown]
  - Bone pain [Not Recovered/Not Resolved]
  - Musculoskeletal disorder [Unknown]
  - Arthropathy [Unknown]
  - Tongue ulceration [Unknown]
  - Glossodynia [Unknown]
  - Tongue haemorrhage [Unknown]
  - Skin infection [Unknown]
  - Arthralgia [Recovered/Resolved]
  - Secretion discharge [Recovered/Resolved]
  - Skin lesion [Not Recovered/Not Resolved]
  - Skin discolouration [Unknown]
  - Scab [Not Recovered/Not Resolved]
  - Pain in extremity [Unknown]
  - Fatigue [Unknown]
  - Herpes zoster [Recovered/Resolved]
  - Erythema [Not Recovered/Not Resolved]
  - Herpes zoster [Unknown]
  - Macule [Unknown]
  - Herpes zoster [Recovered/Resolved]

NARRATIVE: CASE EVENT DATE: 20220101
